FAERS Safety Report 21076312 (Version 3)
Quarter: 2022Q3

REPORT INFORMATION
  Report Type: Spontaneous
  Country: CA (occurrence: CA)
  Receive Date: 20220713
  Receipt Date: 20220816
  Transmission Date: 20221026
  Serious: Yes (Other)
  Sender: FDA-Public Use
  Company Number: CA-PFIZER INC-202101391954

PATIENT
  Age: 68 Year
  Sex: Female
  Weight: 80 kg

DRUGS (17)
  1. RUXIENCE [Suspect]
     Active Substance: RITUXIMAB-PVVR
     Indication: Rheumatoid arthritis
     Dosage: 1 DF
     Route: 058
  2. RUXIENCE [Suspect]
     Active Substance: RITUXIMAB-PVVR
     Indication: Neoplasm malignant
     Dosage: 1 DF DOSAGE INFO: UNKNOWN FOR THE CANCERSTART/STOP DATE: UNKNOWN
     Route: 042
  3. RUXIENCE [Suspect]
     Active Substance: RITUXIMAB-PVVR
     Dosage: 1000 MG, DAY 1 AND DAY 15
     Route: 042
     Dates: start: 20211110, end: 20211126
  4. RUXIENCE [Suspect]
     Active Substance: RITUXIMAB-PVVR
     Dosage: 1000 MG, DAY 1 AND DAY 15
     Route: 042
     Dates: start: 20211110
  5. RUXIENCE [Suspect]
     Active Substance: RITUXIMAB-PVVR
     Dosage: 1000 MG, DAY 1 AND DAY 15
     Route: 042
     Dates: start: 20211126
  6. RUXIENCE [Suspect]
     Active Substance: RITUXIMAB-PVVR
     Dosage: 1000 MG, DAY1, DAY15 SUBSEQUENT DOSES
     Route: 042
     Dates: start: 20220715, end: 20220729
  7. RUXIENCE [Suspect]
     Active Substance: RITUXIMAB-PVVR
     Dosage: 1000 MG, DAY1, DAY15 SUBSEQUENT DOSES
     Route: 042
     Dates: start: 20220715
  8. RUXIENCE [Suspect]
     Active Substance: RITUXIMAB-PVVR
     Dosage: 1000 MG, DAY1, DAY15 SUBSEQUENT DOSES
     Route: 042
     Dates: start: 20220729
  9. RUXIENCE [Suspect]
     Active Substance: RITUXIMAB-PVVR
     Dosage: 1000 MG, DAY1, DAY15 SUBSEQUENT DOSES
     Route: 042
     Dates: start: 20220729
  10. ACETAMINOPHEN [Concomitant]
     Active Substance: ACETAMINOPHEN
     Indication: Premedication
     Dosage: 650 MG
     Route: 048
     Dates: start: 20211110, end: 20211110
  11. ACETAMINOPHEN [Concomitant]
     Active Substance: ACETAMINOPHEN
     Dosage: 650 MG
     Route: 048
     Dates: start: 20220715, end: 20220715
  12. ACETAMINOPHEN [Concomitant]
     Active Substance: ACETAMINOPHEN
     Dosage: 650 MG
     Route: 048
     Dates: start: 20220729, end: 20220729
  13. DIPHENHYDRAMINE [Concomitant]
     Active Substance: DIPHENHYDRAMINE
     Indication: Premedication
     Dosage: 50 MG
     Route: 048
     Dates: start: 20211110, end: 20211110
  14. DIPHENHYDRAMINE [Concomitant]
     Active Substance: DIPHENHYDRAMINE
     Dosage: 50 MG
     Route: 048
     Dates: start: 20220715, end: 20220715
  15. DIPHENHYDRAMINE [Concomitant]
     Active Substance: DIPHENHYDRAMINE
     Dosage: 50 MG
     Route: 048
     Dates: start: 20220729, end: 20220729
  16. PLAQUENIL [Concomitant]
     Active Substance: HYDROXYCHLOROQUINE SULFATE
     Dosage: 1 DF UNKNOWN DOSE
     Route: 065
  17. PREDNISONE [Concomitant]
     Active Substance: PREDNISONE
     Dosage: 1 DF UNKNOWN DOSE
     Route: 066

REACTIONS (7)
  - Knee arthroplasty [Unknown]
  - Off label use [Unknown]
  - Off label use [Unknown]
  - Product use issue [Unknown]
  - Product administration error [Unknown]
  - Pruritus [Unknown]
  - Weight increased [Unknown]

NARRATIVE: CASE EVENT DATE: 20220601
